FAERS Safety Report 9813601 (Version 1)
Quarter: 2014Q1

REPORT INFORMATION
  Report Type: Spontaneous
  Country: US (occurrence: US)
  Receive Date: 20140113
  Receipt Date: 20140113
  Transmission Date: 20141002
  Serious: No
  Sender: FDA-Public Use
  Company Number: US-GILEAD-2014-0091884

PATIENT
  Sex: Female

DRUGS (4)
  1. RANEXA [Suspect]
     Indication: PRODUCT USED FOR UNKNOWN INDICATION
     Dosage: 1000 MG, BID
     Route: 048
     Dates: start: 201307
  2. RANEXA [Suspect]
     Dosage: 500 MG, BID
     Route: 048
     Dates: start: 2013, end: 201307
  3. LISINOPRIL [Concomitant]
  4. OMEPRAZOLE [Concomitant]

REACTIONS (4)
  - Chills [Unknown]
  - Bronchitis [Unknown]
  - Chest pain [Unknown]
  - Back pain [Unknown]
